FAERS Safety Report 14881805 (Version 2)
Quarter: 2018Q2

REPORT INFORMATION
  Report Type: Spontaneous
  Country: None (occurrence: US)
  Receive Date: 20180511
  Receipt Date: 20180511
  Transmission Date: 20180711
  Serious: Yes (Hospitalization)
  Sender: FDA-Public Use
  Company Number: US-MEDAC PHARMA, INC.-2047624

PATIENT
  Age: 61 Year
  Sex: Female

DRUGS (2)
  1. RASUVO [Suspect]
     Active Substance: METHOTREXATE SODIUM
  2. XELJANZ XR [Suspect]
     Active Substance: TOFACITINIB CITRATE

REACTIONS (17)
  - Urinary tract infection [Unknown]
  - Rheumatoid arthritis [Unknown]
  - Breath odour [Unknown]
  - Liver function test increased [Unknown]
  - Hypotension [Unknown]
  - Fluid intake reduced [Unknown]
  - Drug ineffective [Unknown]
  - Chronic kidney disease [Unknown]
  - Influenza [Unknown]
  - Hypovolaemia [Unknown]
  - Malaise [Unknown]
  - Gout [Unknown]
  - Eating disorder [Unknown]
  - Deep vein thrombosis [Unknown]
  - Oropharyngeal pain [Unknown]
  - Herpes simplex [Unknown]
  - Dysuria [Unknown]
